FAERS Safety Report 14475354 (Version 2)
Quarter: 2018Q1

REPORT INFORMATION
  Report Type: Spontaneous
  Country: US (occurrence: US)
  Receive Date: 20180201
  Receipt Date: 20180318
  Transmission Date: 20180509
  Serious: No
  Sender: FDA-Public Use
  Company Number: US-009507513-1801USA013367

PATIENT

DRUGS (6)
  1. MORPHINE SULFATE. [Concomitant]
     Active Substance: MORPHINE SULFATE
  2. ZEPATIER [Suspect]
     Active Substance: ELBASVIR\GRAZOPREVIR
     Indication: HEPATITIS C
     Dosage: 1 TABLET (50/100MG), EVERY DAY
     Route: 048
     Dates: start: 201709
  3. CENTRUM SILVER [Concomitant]
     Active Substance: MINERALS\VITAMINS
  4. LEVEMIR [Concomitant]
     Active Substance: INSULIN DETEMIR
  5. NEXIUM [Concomitant]
     Active Substance: ESOMEPRAZOLE MAGNESIUM
  6. FENTANYL. [Concomitant]
     Active Substance: FENTANYL

REACTIONS (1)
  - Adverse event [Unknown]
